FAERS Safety Report 4530785-5 (Version None)
Quarter: 2004Q4

REPORT INFORMATION
  Report Type: 
  Country: None (occurrence: None)
  Receive Date: 20041129
  Receipt Date: 20040928
  Transmission Date: 20050328
  Serious: Yes (Hospitalization)
  Sender: FDA-Public Use
  Company Number: USA040979569

PATIENT
  Age: 46 Year
  Sex: Male

DRUGS (3)
  1. ZYPREXA [Suspect]
     Indication: PSYCHOTIC DISORDER
     Dosage: 25 MG DAY
     Dates: start: 20040101, end: 20040101
  2. SEROQUEL [Concomitant]
  3. COGENTIN [Concomitant]

REACTIONS (2)
  - PRESCRIBED OVERDOSE [None]
  - PSYCHOTIC DISORDER [None]
